FAERS Safety Report 7596680 (Version 3)
Quarter: 2012Q4

REPORT INFORMATION
  Report Type: 
  Country: DE (occurrence: DE)
  Receive Date: 20100920
  Receipt Date: 20121126
  Transmission Date: 20130627
  Serious: Yes (Hospitalization, Other)
  Sender: FDA-Public Use
  Company Number: PHHY2010DE60688

PATIENT
  Sex: Female

DRUGS (2)
  1. TEGRETOL RETARD [Suspect]
     Indication: EPILEPSY
     Dosage: 1200 mg, QD
     Route: 048
  2. HYPERICUM PERFORATUM EXTRACT [Interacting]
     Dosage: 1 DF, per day
     Route: 048

REACTIONS (8)
  - Fall [Unknown]
  - Cerebral haemorrhage [Unknown]
  - Dementia [Unknown]
  - Mental impairment [Unknown]
  - Drug interaction [Recovered/Resolved]
  - Grand mal convulsion [Recovered/Resolved]
  - Convulsion [Recovered/Resolved]
  - Incontinence [Unknown]
